FAERS Safety Report 20396405 (Version 2)
Quarter: 2022Q1

REPORT INFORMATION
  Report Type: Spontaneous
  Country: PR (occurrence: PR)
  Receive Date: 20220130
  Receipt Date: 20220201
  Transmission Date: 20220423
  Serious: No
  Sender: FDA-Public Use
  Company Number: PR-ABBVIE-21K-131-4149464-00

PATIENT
  Age: 32 Year
  Sex: Male
  Weight: 70.370 kg

DRUGS (1)
  1. HUMIRA [Suspect]
     Active Substance: ADALIMUMAB
     Indication: Crohn^s disease
     Route: 058

REACTIONS (1)
  - Rash papular [Unknown]

NARRATIVE: CASE EVENT DATE: 20211030
